FAERS Safety Report 6305974-X (Version None)
Quarter: 2009Q3

REPORT INFORMATION
  Report Type: 
  Country: None (occurrence: None)
  Receive Date: 20090812
  Receipt Date: 20090803
  Transmission Date: 20100115
  Serious: Yes (Hospitalization)
  Sender: FDA-Public Use
  Company Number: FR-PFIZER INC-2009211452

PATIENT
  Age: 60 Year

DRUGS (7)
  1. SOMAVERT [Suspect]
     Dosage: UNK
     Dates: start: 20070701, end: 20090511
  2. LEVOTHYROX [Concomitant]
     Dosage: UNK
  3. TRIMETAZIDINE [Concomitant]
     Dosage: UNK
  4. LIPANTHYL [Concomitant]
     Dosage: UNK
  5. GLUCOR [Concomitant]
     Dosage: UNK
  6. HYDROCORTISONE [Concomitant]
     Dosage: UNK
  7. KARDEGIC [Concomitant]
     Dosage: UNK

REACTIONS (1)
  - CHOLECYSTITIS ACUTE [None]
